FAERS Safety Report 22161612 (Version 1)
Quarter: 2023Q1

REPORT INFORMATION
  Report Type: Report from Study
  Country: FR (occurrence: FR)
  Receive Date: 20230331
  Receipt Date: 20230331
  Transmission Date: 20230417
  Serious: Yes (Other)
  Sender: FDA-Public Use
  Company Number: FR-KOREA IPSEN Pharma-2023-07260

PATIENT

DRUGS (14)
  1. CABOZANTINIB [Suspect]
     Active Substance: CABOZANTINIB
     Indication: Renal cell carcinoma
     Dosage: 40 MG, QD
     Route: 048
     Dates: start: 20221122, end: 20221130
  2. CABOZANTINIB [Suspect]
     Active Substance: CABOZANTINIB
     Dosage: 40 MG, QD
     Route: 048
     Dates: start: 20221201, end: 20221212
  3. CABOZANTINIB [Suspect]
     Active Substance: CABOZANTINIB
     Dosage: 40 MG, QD
     Route: 048
     Dates: start: 20221213
  4. NIVOLUMAB [Suspect]
     Active Substance: NIVOLUMAB
     Indication: Renal cell carcinoma
     Dosage: 240 MG ONCE
     Route: 042
     Dates: start: 20221122
  5. NIVOLUMAB [Suspect]
     Active Substance: NIVOLUMAB
     Dosage: 240 MG ONCE
     Route: 042
     Dates: start: 20221220
  6. NIVOLUMAB [Suspect]
     Active Substance: NIVOLUMAB
     Dosage: 240 MG ONCE
     Route: 042
     Dates: start: 20230103
  7. NIVOLUMAB [Suspect]
     Active Substance: NIVOLUMAB
     Dosage: 240 MG ONCE
     Route: 042
     Dates: start: 20230117
  8. NIVOLUMAB [Suspect]
     Active Substance: NIVOLUMAB
     Dosage: 240 MG ONCE
     Route: 042
     Dates: start: 20230131
  9. NIVOLUMAB [Suspect]
     Active Substance: NIVOLUMAB
     Dosage: 240 MG ONCE
     Route: 042
     Dates: start: 20230214
  10. NIVOLUMAB [Suspect]
     Active Substance: NIVOLUMAB
     Dosage: 240 MG ONCE
     Route: 042
     Dates: start: 20230228
  11. NIVOLUMAB [Suspect]
     Active Substance: NIVOLUMAB
     Dosage: 240 MG ONCE
     Route: 042
     Dates: start: 20230314
  12. EBASTINE [Concomitant]
     Active Substance: EBASTINE
     Indication: Hypersensitivity
     Dosage: UNK
     Route: 048
     Dates: start: 20221125, end: 20230103
  13. AUGMENTIN [Concomitant]
     Active Substance: AMOXICILLIN\CLAVULANATE POTASSIUM
     Indication: Nodule
     Dosage: UNK
     Route: 048
     Dates: start: 20221117, end: 20221127
  14. SOLUPRED [Concomitant]
     Indication: Anti-infective therapy
     Dosage: UNK
     Route: 048
     Dates: start: 20221130, end: 20221220

REACTIONS (10)
  - Erythema [Recovered/Resolved]
  - Rash erythematous [Recovered/Resolved with Sequelae]
  - Chills [Recovered/Resolved]
  - Hair colour changes [Not Recovered/Not Resolved]
  - Faeces discoloured [Recovered/Resolved]
  - Dysphagia [Recovering/Resolving]
  - Abdominal pain upper [Recovered/Resolved]
  - Abdominal pain upper [Recovering/Resolving]
  - Asthenia [Recovered/Resolved]
  - Palmar-plantar erythrodysaesthesia syndrome [Unknown]

NARRATIVE: CASE EVENT DATE: 20221127
